FAERS Safety Report 16260972 (Version 4)
Quarter: 2020Q1

REPORT INFORMATION
  Report Type: Spontaneous
  Country: US (occurrence: US)
  Receive Date: 20190501
  Receipt Date: 20200228
  Transmission Date: 20200409
  Serious: No
  Sender: FDA-Public Use
  Company Number: US-PFIZER INC-2019182480

PATIENT
  Age: 71 Year
  Sex: Male
  Weight: 84 kg

DRUGS (12)
  1. LYRICA [Suspect]
     Active Substance: PREGABALIN
     Indication: NEUROPATHY PERIPHERAL
     Dosage: UNK
  2. MELOXICAM. [Concomitant]
     Active Substance: MELOXICAM
     Indication: ARTHRITIS
     Dosage: 75 MG, DAILY
  3. DIVALPROEX [Concomitant]
     Active Substance: DIVALPROEX SODIUM
     Indication: SEIZURE
  4. LYRICA [Suspect]
     Active Substance: PREGABALIN
     Dosage: 150 MG, DAILY (ONE IN THE MORNING AND TWO AT NIGHT)
     Route: 048
     Dates: start: 20181008
  5. LIPITOR [Concomitant]
     Active Substance: ATORVASTATIN CALCIUM
     Dosage: 20 MG, UNK
  6. HYDROCHLOROTHIAZIDE. [Concomitant]
     Active Substance: HYDROCHLOROTHIAZIDE
     Dosage: 5 MG, 1X/DAY
  7. LYRICA [Suspect]
     Active Substance: PREGABALIN
     Dosage: 75 MG, 3X/DAY(1 CAPSULE IN THE MORNING AND 2 CAPSULES AT NIGHT DAILY)
     Route: 048
     Dates: start: 20190410
  8. XANAX [Concomitant]
     Active Substance: ALPRAZOLAM
     Indication: EPILEPSY
     Dosage: 1 MG, DAILY (0.5MG IN THE MORNING AND 0.5MG IN THE EVENING)
  9. DIVALPROEX [Concomitant]
     Active Substance: DIVALPROEX SODIUM
     Indication: EPILEPSY
     Dosage: 500 MG, 1X/DAY
  10. ATORVASTATIN CALCIUM. [Concomitant]
     Active Substance: ATORVASTATIN CALCIUM
     Indication: CARDIAC DISORDER
     Dosage: 20 MG, 1X/DAY
  11. LYRICA [Suspect]
     Active Substance: PREGABALIN
     Dosage: UNK
  12. FOSINOPRIL [Concomitant]
     Active Substance: FOSINOPRIL
     Indication: BLOOD PRESSURE ABNORMAL
     Dosage: 20 MG, 1X/DAY

REACTIONS (1)
  - Product dose omission [Unknown]
